FAERS Safety Report 6655924-1 (Version None)
Quarter: 2010Q1

REPORT INFORMATION
  Report Type: 
  Country: None (occurrence: None)
  Receive Date: 20100329
  Receipt Date: 20100317
  Transmission Date: 20100710
  Serious: Yes (Other)
  Sender: FDA-Public Use
  Company Number: PHHY2010GB17181

PATIENT
  Age: 57 Year
  Sex: Female

DRUGS (6)
  1. CLOZAPINE [Suspect]
     Indication: SCHIZOPHRENIA
     Dosage: 12.5 MG/DAY
     Dates: start: 20071101
  2. CLOZAPINE [Suspect]
     Dosage: 12.5 MG, BID
  3. OLANZAPINE [Concomitant]
     Indication: PSYCHOTIC DISORDER
     Dosage: 10 MG
  4. LEVOMEPROMAZINE [Concomitant]
     Indication: PSYCHOTIC DISORDER
     Dosage: 75 MG, QHS
  5. VALPROATE SODIUM [Concomitant]
     Indication: PSYCHOTIC DISORDER
     Dosage: 1100 MG PER
  6. HALOPERIDOL [Concomitant]
     Dosage: 5 MG
     Route: 030

REACTIONS (13)
  - C-REACTIVE PROTEIN INCREASED [None]
  - LOWER RESPIRATORY TRACT INFECTION [None]
  - LYMPHOCYTE COUNT DECREASED [None]
  - MALAISE [None]
  - NEUTROPHIL COUNT INCREASED [None]
  - PROTEIN URINE [None]
  - PYREXIA [None]
  - PYURIA [None]
  - RED BLOOD CELLS URINE [None]
  - RENAL FAILURE ACUTE [None]
  - TACHYCARDIA [None]
  - TUBULOINTERSTITIAL NEPHRITIS [None]
  - URINARY TRACT INFECTION [None]
